FAERS Safety Report 5856304-9 (Version None)
Quarter: 2008Q3

REPORT INFORMATION
  Report Type: 
  Country: None (occurrence: None)
  Receive Date: 20080825
  Receipt Date: 20080815
  Transmission Date: 20090109
  Serious: Yes (Hospitalization)
  Sender: FDA-Public Use
  Company Number: GB-AMGEN-US290518

PATIENT
  Sex: Male

DRUGS (16)
  1. ENBREL [Suspect]
     Indication: PSORIATIC ARTHROPATHY
     Dosage: 50 MG (FREQUENCY UNKNOWN)
     Route: 058
     Dates: start: 20060727
  2. SODIUM BICARBONATE [Concomitant]
     Dosage: AS REQUIRED
  3. HYPROMELLOSE [Concomitant]
     Dosage: AS REQUIRED
     Route: 047
  4. SULFASALAZINE [Concomitant]
  5. AMIODARONE HCL [Concomitant]
     Dosage: UNKNOWN
     Dates: start: 20060101
  6. ASPIRIN [Concomitant]
     Dosage: UNKNOWN
     Dates: start: 20060101
  7. RAMIPRIL [Concomitant]
     Dosage: UNKNOWN
     Dates: start: 20060101
  8. OMEPRAZOLE [Concomitant]
     Dosage: UNKNOWN
     Dates: start: 20060101
  9. NICORANDIL [Concomitant]
     Dosage: UNKNOWN
     Dates: start: 20060101
  10. PYRIDOXINE HYDROCHLORIDE [Concomitant]
     Dosage: UNKNOWN
     Dates: start: 20060101
  11. ISMO - SLOW RELEASE [Concomitant]
     Dosage: UNKNOWN
     Dates: start: 20060101
  12. BISOPROLOL FUMARATE [Concomitant]
     Dosage: UNKNOWN
     Dates: start: 20060101
  13. SIMVASTATIN [Concomitant]
     Dosage: UNKNOWN
     Dates: start: 20060101
  14. AMLODIPINE [Concomitant]
     Dosage: UNKNOWN
     Dates: start: 20060101
  15. CO-CODAMOL [Concomitant]
     Dosage: UNKNOWN
     Dates: start: 20060101
  16. GLANDOSANE [Concomitant]
     Dosage: UNKNOWN

REACTIONS (2)
  - COLITIS [None]
  - LARGE INTESTINE PERFORATION [None]
